FAERS Safety Report 23841813 (Version 1)
Quarter: 2024Q2

REPORT INFORMATION
  Report Type: Spontaneous
  Country: US (occurrence: None)
  Receive Date: 20240509
  Receipt Date: 20240509
  Transmission Date: 20240716
  Serious: Yes (Death, Other)
  Sender: FDA-Public Use
  Company Number: None

PATIENT
  Age: 70 Year
  Sex: Male
  Weight: 110.2 kg

DRUGS (19)
  1. LUMASON [Suspect]
     Active Substance: SULFUR HEXAFLUORIDE
     Indication: Cardiac failure acute
     Dosage: OTHER FREQUENCY : ONCE;?
     Route: 040
     Dates: start: 20240508, end: 20240508
  2. ATORVASTATIN [Concomitant]
  3. BACLOFEN [Concomitant]
  4. FENOFIBRATE [Concomitant]
  5. FUROSEMIDE [Concomitant]
  6. JAKAFI [Concomitant]
  7. JARDIANCE [Concomitant]
  8. LEVOTHYROXINE [Concomitant]
  9. METFORMIN [Concomitant]
  10. PEGASYS [Concomitant]
  11. POTASSIUM CHLORIDE [Concomitant]
  12. TRELEGY ELLIPTA [Concomitant]
  13. ZITHROMAX [Concomitant]
  14. Rocephin 1gm [Concomitant]
  15. DOXYCYCLINE [Concomitant]
  16. Pepcid [Concomitant]
  17. SOLUMEDROL [Concomitant]
  18. HEPARIN [Concomitant]
  19. DUONEB [Concomitant]
     Active Substance: ALBUTEROL SULFATE\IPRATROPIUM BROMIDE

REACTIONS (4)
  - Immediate post-injection reaction [None]
  - Bradycardia [None]
  - Pulseless electrical activity [None]
  - Cardio-respiratory arrest [None]

NARRATIVE: CASE EVENT DATE: 20240508
